FAERS Safety Report 8189659-3 (Version None)
Quarter: 2012Q1

REPORT INFORMATION
  Report Type: 
  Country: None (occurrence: None)
  Receive Date: 20120307
  Receipt Date: 20120228
  Transmission Date: 20120608
  Serious: Yes (Hospitalization)
  Sender: FDA-Public Use
  Company Number: FR-UCBSA-052478

PATIENT
  Age: 92 Year
  Sex: Female

DRUGS (12)
  1. IRBESARTAN [Suspect]
     Indication: HYPERTENSION
     Dates: start: 20120125
  2. ATHYMIL [Concomitant]
     Indication: DEPRESSION
     Route: 048
     Dates: start: 20110801
  3. KEPPRA [Suspect]
     Indication: EPILEPSY
     Route: 048
     Dates: start: 20120119
  4. OXAZEPAM [Concomitant]
     Indication: INSOMNIA
     Dosage: 5 MG IN THE EVENING
     Route: 048
     Dates: start: 20110301, end: 20120125
  5. CARBAMAZEPINE MYLAN LP [Suspect]
     Dates: start: 20120119, end: 20120123
  6. AMLODIPINE BESYLATE [Concomitant]
     Indication: HYPERTENSION
     Route: 048
     Dates: start: 20110801
  7. CALCIPARINE [Concomitant]
  8. KEPPRA [Suspect]
     Route: 048
     Dates: start: 20110730, end: 20120118
  9. ASPIRIN [Concomitant]
     Indication: CEREBROVASCULAR ACCIDENT PROPHYLAXIS
     Route: 048
     Dates: start: 20110301
  10. CARBAMAZEPINE [Suspect]
     Indication: EPILEPSY
     Dates: start: 20120124, end: 20120131
  11. BISOPROLOL FUMARATE [Suspect]
     Indication: HYPERTENSION
     Dates: start: 20110801, end: 20120130
  12. ACETAMINOPHEN [Concomitant]
     Indication: PAIN
     Dosage: TWICE DAILY
     Route: 048
     Dates: start: 20120120

REACTIONS (7)
  - MALAISE [None]
  - URINARY INCONTINENCE [None]
  - LOSS OF CONSCIOUSNESS [None]
  - VITREOUS FLOATERS [None]
  - HEADACHE [None]
  - VOMITING [None]
  - BRADYCARDIA [None]
